FAERS Safety Report 25422022 (Version 1)
Quarter: 2025Q2

REPORT INFORMATION
  Report Type: Spontaneous
  Country: US (occurrence: US)
  Receive Date: 20250611
  Receipt Date: 20250611
  Transmission Date: 20250716
  Serious: No
  Sender: ELI LILLY AND COMPANY
  Company Number: US-ELI_LILLY_AND_COMPANY-US202506007826

PATIENT

DRUGS (1)
  1. VERZENIO [Suspect]
     Active Substance: ABEMACICLIB
     Indication: Metastases to spine
     Route: 065

REACTIONS (4)
  - Myalgia [Unknown]
  - Off label use [Unknown]
  - Arthralgia [Unknown]
  - Diarrhoea [Recovering/Resolving]
